FAERS Safety Report 12527690 (Version 1)
Quarter: 2016Q3

REPORT INFORMATION
  Report Type: Spontaneous
  Country: DE (occurrence: DE)
  Receive Date: 20160705
  Receipt Date: 20160705
  Transmission Date: 20161109
  Serious: Yes (Life-Threatening, Other)
  Sender: FDA-Public Use
  Company Number: PHHY2016DE090848

PATIENT
  Age: 16 Year

DRUGS (1)
  1. LAMPREN [Suspect]
     Active Substance: CLOFAZIMINE
     Indication: PRODUCT USED FOR UNKNOWN INDICATION
     Route: 065

REACTIONS (6)
  - Suicidal ideation [Unknown]
  - Pain [Unknown]
  - Concomitant disease progression [Unknown]
  - Mouth ulceration [Unknown]
  - Dysphagia [Unknown]
  - Lip swelling [Unknown]
